FAERS Safety Report 24571939 (Version 1)
Quarter: 2024Q4

REPORT INFORMATION
  Report Type: Spontaneous
  Country: US (occurrence: US)
  Receive Date: 20241101
  Receipt Date: 20241101
  Transmission Date: 20250115
  Serious: No
  Sender: ALEXION PHARMACEUTICALS
  Company Number: US-AstraZeneca-2024A139863

PATIENT

DRUGS (8)
  1. FASENRA [Suspect]
     Active Substance: BENRALIZUMAB
     Indication: Asthma
     Dosage: 30 MILLIGRAM PER MILLILITRE, Q4W (INJECT 1 PEN UNDER THE SKIN EVERY 4 WEEKS FOR THEIR FIRST 3 DOSES)
  2. FASENRA [Suspect]
     Active Substance: BENRALIZUMAB
     Dosage: 30 MILLIGRAM PER MILLILITRE, Q4W (INJECT 1 PEN UNDER THE SKIN EVERY 4 WEEKS FOR THEIR FIRST 3 DOSES)
  3. FASENRA [Suspect]
     Active Substance: BENRALIZUMAB
     Dosage: 30 MILLIGRAM PER MILLILITRE, Q4W (INJECT 1 PEN UNDER THE SKIN EVERY 4 WEEKS FOR THEIR FIRST 3 DOSES)
  4. FASENRA [Suspect]
     Active Substance: BENRALIZUMAB
     Dosage: 30 MILLIGRAM PER MILLILITRE, Q4W (INJECT 1 PEN UNDER THE SKIN EVERY 4 WEEKS FOR THEIR FIRST 3 DOSES)
  5. FASENRA [Suspect]
     Active Substance: BENRALIZUMAB
     Dosage: 30 MILLIGRAM PER MILLILITRE, Q4W (AFTER 3 DOSES INJECT 1 PEN UNDER THE SKIN EVERY 8 WEEK)
  6. FASENRA [Suspect]
     Active Substance: BENRALIZUMAB
     Dosage: 30 MILLIGRAM PER MILLILITRE, Q4W (AFTER 3 DOSES INJECT 1 PEN UNDER THE SKIN EVERY 8 WEEK)
  7. FASENRA [Suspect]
     Active Substance: BENRALIZUMAB
     Dosage: 30 MILLIGRAM PER MILLILITRE, Q4W (AFTER 3 DOSES INJECT 1 PEN UNDER THE SKIN EVERY 8 WEEK)
  8. FASENRA [Suspect]
     Active Substance: BENRALIZUMAB
     Dosage: 30 MILLIGRAM PER MILLILITRE, Q4W (AFTER 3 DOSES INJECT 1 PEN UNDER THE SKIN EVERY 8 WEEK)

REACTIONS (4)
  - Asthma [Unknown]
  - Quality of life decreased [Unknown]
  - Drug ineffective [Unknown]
  - Inappropriate schedule of product administration [Unknown]
